FAERS Safety Report 22068191 (Version 12)
Quarter: 2025Q1

REPORT INFORMATION
  Report Type: Spontaneous
  Country: US (occurrence: US)
  Receive Date: 20230307
  Receipt Date: 20250225
  Transmission Date: 20250409
  Serious: Yes (Other)
  Sender: PFIZER
  Company Number: US-PFIZER INC-2019533365

PATIENT
  Age: 74 Year
  Sex: Female
  Weight: 61.23 kg

DRUGS (11)
  1. ESTRING [Suspect]
     Active Substance: ESTRADIOL
     Indication: Atrophic vulvovaginitis
     Route: 067
  2. ESTRING [Suspect]
     Active Substance: ESTRADIOL
     Route: 067
     Dates: start: 20200213
  3. ESTRING [Suspect]
     Active Substance: ESTRADIOL
     Route: 067
     Dates: start: 20200804
  4. ESTRING [Suspect]
     Active Substance: ESTRADIOL
     Route: 067
     Dates: start: 20201220
  5. ESTRING [Suspect]
     Active Substance: ESTRADIOL
     Route: 067
     Dates: start: 20210505
  6. ESTRING [Suspect]
     Active Substance: ESTRADIOL
     Route: 067
     Dates: start: 20211008
  7. ESTRING [Suspect]
     Active Substance: ESTRADIOL
     Route: 067
     Dates: start: 20220111
  8. ESTRING [Suspect]
     Active Substance: ESTRADIOL
     Route: 067
     Dates: start: 20221215
  9. ESTRING [Suspect]
     Active Substance: ESTRADIOL
     Route: 067
     Dates: start: 20230228
  10. ESTRING [Suspect]
     Active Substance: ESTRADIOL
  11. GEMTESA [Concomitant]
     Active Substance: VIBEGRON
     Indication: Hypertonic bladder

REACTIONS (6)
  - Urinary retention [Unknown]
  - Urinary tract infection [Unknown]
  - Urine abnormality [Unknown]
  - Cystitis [Unknown]
  - Device use issue [Unknown]
  - Product prescribing error [Unknown]
